FAERS Safety Report 14678722 (Version 2)
Quarter: 2018Q4

REPORT INFORMATION
  Report Type: Spontaneous
  Country: US (occurrence: US)
  Receive Date: 20180326
  Receipt Date: 20181017
  Transmission Date: 20190204
  Serious: Yes (Life-Threatening, Hospitalization, Other)
  Sender: FDA-Public Use
  Company Number: US-AUROBINDO-AUR-APL-2018-015940

PATIENT
  Age: 37 Year
  Sex: Female

DRUGS (1)
  1. LOPERAMIDE [Suspect]
     Active Substance: LOPERAMIDE
     Indication: BACK PAIN
     Dosage: 120 MILLIGRAM, DAILY
     Route: 065

REACTIONS (2)
  - Drug abuse [Recovered/Resolved]
  - Torsade de pointes [Recovered/Resolved]
